FAERS Safety Report 24939362 (Version 2)
Quarter: 2025Q2

REPORT INFORMATION
  Report Type: Report from Study
  Country: CA (occurrence: CA)
  Receive Date: 20250206
  Receipt Date: 20250508
  Transmission Date: 20250716
  Serious: Yes (Other)
  Sender: ABBVIE
  Company Number: CA-ABBVIE-6119081

PATIENT
  Age: 84 Year
  Sex: Male

DRUGS (1)
  1. LUPRON [Suspect]
     Active Substance: LEUPROLIDE ACETATE
     Indication: Prostate cancer
     Dosage: FORM STRENGTH: 22.5 MG
     Route: 030
     Dates: start: 20240430

REACTIONS (5)
  - Medical device change [Unknown]
  - Dementia Alzheimer^s type [Unknown]
  - Asthenia [Unknown]
  - Balance disorder [Unknown]
  - Feeling hot [Unknown]

NARRATIVE: CASE EVENT DATE: 20250101
